FAERS Safety Report 8507387-9 (Version None)
Quarter: 2012Q3

REPORT INFORMATION
  Report Type: 
  Country: None (occurrence: None)
  Receive Date: 20120712
  Receipt Date: 20120711
  Transmission Date: 20120928
  Serious: Yes (Other)
  Sender: FDA-Public Use
  Company Number: ES-BAYER-2012-069160

PATIENT
  Age: 16 Year
  Sex: Male

DRUGS (2)
  1. MOXIFLOXACIN [Suspect]
     Indication: SURGERY
     Dosage: UNK
     Route: 042
     Dates: start: 20120710, end: 20120710
  2. OMEPRAZOLE [Concomitant]

REACTIONS (1)
  - CHEST DISCOMFORT [None]
